FAERS Safety Report 7363642-X (Version None)
Quarter: 2011Q1

REPORT INFORMATION
  Report Type: 
  Country: None (occurrence: None)
  Receive Date: 20110321
  Receipt Date: 20110310
  Transmission Date: 20110831
  Serious: Yes (Hospitalization)
  Sender: FDA-Public Use
  Company Number: JP-SANOFI-AVENTIS-2011SA013334

PATIENT
  Age: 69 Year
  Sex: Male

DRUGS (5)
  1. MYSLEE [Suspect]
     Indication: INSOMNIA
     Route: 048
     Dates: start: 20110207, end: 20110216
  2. ELCITONIN [Concomitant]
     Indication: OSTEOPOROSIS
     Route: 065
     Dates: start: 20110124, end: 20110214
  3. CELECOXIB [Suspect]
     Route: 048
     Dates: start: 20110207, end: 20110216
  4. LYRICA [Suspect]
     Route: 048
     Dates: start: 20110207, end: 20110214
  5. LYRICA [Suspect]
     Route: 048
     Dates: start: 20110215, end: 20110216

REACTIONS (5)
  - PURPURA [None]
  - RASH [None]
  - PRURITUS [None]
  - STEVENS-JOHNSON SYNDROME [None]
  - FACE OEDEMA [None]
